FAERS Safety Report 9210928 (Version 11)
Quarter: 2017Q1

REPORT INFORMATION
  Report Type: Spontaneous
  Country: US (occurrence: US)
  Receive Date: 20130404
  Receipt Date: 20170310
  Transmission Date: 20170429
  Serious: Yes (Other)
  Sender: FDA-Public Use
  Company Number: US-009507513-1304USA000274

PATIENT
  Sex: Male
  Weight: 77.55 kg

DRUGS (1)
  1. PROPECIA [Suspect]
     Active Substance: FINASTERIDE
     Indication: ANDROGENETIC ALOPECIA
     Dosage: 1 MG, QD
     Route: 048
     Dates: start: 20061231, end: 2012

REACTIONS (17)
  - Hypercorticoidism [Unknown]
  - Attention deficit/hyperactivity disorder [Recovering/Resolving]
  - Tonsillectomy [Unknown]
  - Adrenalectomy [Unknown]
  - Cognitive disorder [Not Recovered/Not Resolved]
  - Generalised anxiety disorder [Unknown]
  - High density lipoprotein decreased [Unknown]
  - Testicular disorder [Unknown]
  - Erectile dysfunction [Not Recovered/Not Resolved]
  - Muscle spasms [Recovered/Resolved]
  - Testicular mass [Unknown]
  - Scrotal mass [Unknown]
  - Sexual dysfunction [Unknown]
  - Major depression [Unknown]
  - Orchidectomy [Unknown]
  - Scrotal cancer [Unknown]
  - Fatigue [Unknown]

NARRATIVE: CASE EVENT DATE: 2006
